FAERS Safety Report 11820973 (Version 1)
Quarter: 2015Q4

REPORT INFORMATION
  Report Type: Spontaneous
  Country: US (occurrence: None)
  Receive Date: 20151209
  Receipt Date: 20151209
  Transmission Date: 20160305
  Serious: Yes (Other)
  Sender: FDA-Public Use
  Company Number: None

PATIENT
  Age: 43 Year
  Sex: Female
  Weight: 58.97 kg

DRUGS (7)
  1. FEXOFENADINE HYDROCHLORIDE 180 MG TARGET UP + UP [Suspect]
     Active Substance: FEXOFENADINE HYDROCHLORIDE
     Indication: SINUS HEADACHE
     Dosage: 1 PILL
     Route: 048
     Dates: start: 20151001, end: 20151202
  2. GENERIC ALLEGRA [Concomitant]
  3. CALCIUM [Concomitant]
     Active Substance: CALCIUM
  4. VITAMIN B [Concomitant]
     Active Substance: VITAMIN B
  5. PROBIOTIC [Concomitant]
     Active Substance: PROBIOTICS NOS
  6. FEXOFENADINE HYDROCHLORIDE 180 MG TARGET UP + UP [Suspect]
     Active Substance: FEXOFENADINE HYDROCHLORIDE
     Indication: HYPERSENSITIVITY
     Dosage: 1 PILL
     Route: 048
     Dates: start: 20151001, end: 20151202
  7. MULTIVITAMIN [Concomitant]
     Active Substance: VITAMINS

REACTIONS (4)
  - Arthralgia [None]
  - Myalgia [None]
  - Gastrointestinal disorder [None]
  - Tendon pain [None]

NARRATIVE: CASE EVENT DATE: 20151001
